FAERS Safety Report 13502643 (Version 1)
Quarter: 2017Q2

REPORT INFORMATION
  Report Type: Report from Study
  Country: US (occurrence: US)
  Receive Date: 20170502
  Receipt Date: 20170502
  Transmission Date: 20170830
  Serious: Yes (Hospitalization)
  Sender: FDA-Public Use
  Company Number: US-EMD SERONO-8155401

PATIENT
  Age: 26 Year
  Sex: Female

DRUGS (2)
  1. REBIF [Suspect]
     Active Substance: INTERFERON BETA-1A
     Route: 058
     Dates: start: 20170423
  2. REBIF [Suspect]
     Active Substance: INTERFERON BETA-1A
     Indication: MULTIPLE SCLEROSIS
     Route: 058
     Dates: start: 20170411

REACTIONS (10)
  - Hallucination [Recovering/Resolving]
  - Balance disorder [Unknown]
  - Headache [Unknown]
  - Soliloquy [Unknown]
  - Tremor [Recovering/Resolving]
  - Malaise [Unknown]
  - Antipsychotic drug level increased [Recovering/Resolving]
  - Hypertension [Unknown]
  - Dysarthria [Recovering/Resolving]
  - Nausea [Unknown]

NARRATIVE: CASE EVENT DATE: 201704
